FAERS Safety Report 4707422-X (Version None)
Quarter: 2005Q3

REPORT INFORMATION
  Report Type: 
  Country: None (occurrence: None)
  Receive Date: 20050706
  Receipt Date: 20050509
  Transmission Date: 20060218
  Serious: Yes (Life-Threatening, Hospitalization, Other)
  Sender: FDA-Public Use
  Company Number: 2005UW07252

PATIENT
  Age: 79 Year
  Sex: Male
  Weight: 79.5 kg

DRUGS (26)
  1. CRESTOR [Suspect]
     Indication: BLOOD CHOLESTEROL
     Route: 048
     Dates: start: 20030905, end: 20040424
  2. CRESTOR [Interacting]
     Route: 048
     Dates: start: 20040501, end: 20040617
  3. SPORANOX [Interacting]
     Route: 048
  4. ANDRIOL [Concomitant]
  5. APO-FOLIC [Concomitant]
     Dates: end: 20040617
  6. ASPIRIN [Concomitant]
     Dates: end: 20040617
  7. AVAPRO [Concomitant]
  8. CHRONOVERA [Concomitant]
  9. DIOVAN HCT [Concomitant]
     Dosage: 80/12.5 MG DAILY
  10. GEN-INDAPAMIDE [Concomitant]
  11. K-DUR 10 [Concomitant]
  12. METAMUCIL [Concomitant]
  13. MOBIC [Concomitant]
     Dates: start: 20030728
  14. NIZORAL [Concomitant]
     Indication: FUNGAL INFECTION
  15. NOVO-ATENOL [Concomitant]
  16. NOVO-LOPERAMIDE [Concomitant]
  17. ONE A DAY [Concomitant]
  18. VITAMIN B6 [Concomitant]
     Dates: end: 20040617
  19. VITAMIN D [Concomitant]
  20. VITAMIN E [Concomitant]
  21. SLOW FE [Concomitant]
  22. APO K [Concomitant]
  23. MICARDIS [Concomitant]
  24. NORVASC [Concomitant]
     Dates: end: 20040617
  25. NOVO SPIROTON [Concomitant]
  26. NOVO HYDRAZIDE [Concomitant]
     Dosage: 1/4 TABLET

REACTIONS (11)
  - ABDOMINAL DISCOMFORT [None]
  - ANOREXIA [None]
  - DEHYDRATION [None]
  - DELAYED EFFECTS OF RADIATION [None]
  - DRUG INTERACTION [None]
  - EYE DISORDER [None]
  - KIDNEY INFECTION [None]
  - MUSCLE ATROPHY [None]
  - NAUSEA [None]
  - URETERIC OBSTRUCTION [None]
  - WEIGHT DECREASED [None]
